FAERS Safety Report 26020732 (Version 1)
Quarter: 2025Q4

REPORT INFORMATION
  Report Type: Spontaneous
  Country: US (occurrence: None)
  Receive Date: 20251109
  Receipt Date: 20251109
  Transmission Date: 20260118
  Serious: Yes (Other)
  Sender: FDA-CTU
  Company Number: None

PATIENT
  Age: 38 Year
  Sex: Male
  Weight: 121.5 kg

DRUGS (4)
  1. LOSARTAN [Suspect]
     Active Substance: LOSARTAN
  2. AMLODIPINE [Suspect]
     Active Substance: AMLODIPINE BESYLATE
  3. ATORVASTATIN [Concomitant]
     Active Substance: ATORVASTATIN
  4. METFORMIN [Concomitant]
     Active Substance: METFORMIN HYDROCHLORIDE

REACTIONS (3)
  - Dizziness [None]
  - Blood pressure decreased [None]
  - Blood glucose decreased [None]

NARRATIVE: CASE EVENT DATE: 20250417
